FAERS Safety Report 13514568 (Version 2)
Quarter: 2017Q4

REPORT INFORMATION
  Report Type: Spontaneous
  Country: IT (occurrence: IT)
  Receive Date: 20170504
  Receipt Date: 20171030
  Transmission Date: 20180320
  Serious: Yes (Hospitalization, Other)
  Sender: FDA-Public Use
  Company Number: IT-NOVOPROD-542858

PATIENT
  Age: 51 Year
  Sex: Female

DRUGS (6)
  1. LEVEMIR [Suspect]
     Active Substance: INSULIN DETEMIR
     Indication: TYPE 2 DIABETES MELLITUS
     Dosage: 18 U, QD (NIGHT)
     Route: 058
     Dates: start: 20170324
  2. HUMALOG [Suspect]
     Active Substance: INSULIN LISPRO
     Indication: TYPE 2 DIABETES MELLITUS
     Dosage: 32 U
     Route: 058
     Dates: start: 20170324
  3. PALEXIA [Concomitant]
     Active Substance: TAPENTADOL HYDROCHLORIDE
     Dosage: 600 MG
     Route: 065
     Dates: start: 20170324
  4. GABAPENTIN. [Concomitant]
     Active Substance: GABAPENTIN
     Dosage: 1200 MG
     Route: 048
     Dates: start: 20170324
  5. CONTRAMAL [Concomitant]
     Active Substance: TRAMADOL HYDROCHLORIDE
     Dosage: 30 DROPS
     Route: 065
     Dates: start: 20170324
  6. TRAMADOL. [Concomitant]
     Active Substance: TRAMADOL
     Indication: BACK PAIN
     Dosage: UNK
     Route: 065

REACTIONS (5)
  - Diabetes mellitus inadequate control [Unknown]
  - Epigastric discomfort [Unknown]
  - Loss of consciousness [Unknown]
  - Hypoglycaemia [Recovering/Resolving]
  - Vertigo [Unknown]

NARRATIVE: CASE EVENT DATE: 20170331
